FAERS Safety Report 20430799 (Version 1)
Quarter: 2022Q1

REPORT INFORMATION
  Report Type: Report from Study
  Country: FR (occurrence: FR)
  Receive Date: 20220204
  Receipt Date: 20220204
  Transmission Date: 20220423
  Serious: Yes (Life-Threatening, Hospitalization, Other)
  Sender: FDA-Public Use
  Company Number: FR-SERVIER-S21005971

PATIENT

DRUGS (7)
  1. PEGASPARGASE [Suspect]
     Active Substance: PEGASPARGASE
     Indication: Acute lymphocytic leukaemia
     Dosage: 3450 IU, D12
     Route: 042
     Dates: start: 20210511
  2. VINCRISTINE SULFATE [Suspect]
     Active Substance: VINCRISTINE SULFATE
     Indication: Acute lymphocytic leukaemia
     Dosage: 2 MG, (D8, D15, D22, D29)
     Route: 042
     Dates: start: 20210507
  3. DAUNORUBICIN HYDROCHLORIDE [Suspect]
     Active Substance: DAUNORUBICIN HYDROCHLORIDE
     Indication: Acute lymphocytic leukaemia
     Dosage: 41.4 MG, (D8, D15, D22, D29)
     Route: 042
     Dates: start: 20210507
  4. METHOTREXATE [Suspect]
     Active Substance: METHOTREXATE
     Indication: Acute lymphocytic leukaemia
     Dosage: 15 MG, (D13)
     Route: 037
     Dates: start: 20210512
  5. DEXAMETHASONE [Suspect]
     Active Substance: DEXAMETHASONE
     Indication: Acute lymphocytic leukaemia
     Dosage: 14 MG, (D8 TO D29)
     Route: 048
     Dates: start: 20210507, end: 20210528
  6. DEXAMETHASONE [Suspect]
     Active Substance: DEXAMETHASONE
     Dosage: 13.5 MG
     Route: 048
     Dates: start: 20210529, end: 20210607
  7. SULFAMETHOXAZOLE\TRIMETHOPRIM [Suspect]
     Active Substance: SULFAMETHOXAZOLE\TRIMETHOPRIM
     Indication: Nephrotic syndrome
     Dosage: 800 MG, QD
     Route: 048
     Dates: start: 20210507

REACTIONS (4)
  - Seizure [Recovering/Resolving]
  - Status epilepticus [Recovering/Resolving]
  - Hyperbilirubinaemia [Recovered/Resolved]
  - Ureterolithiasis [Recovered/Resolved]

NARRATIVE: CASE EVENT DATE: 20210518
